FAERS Safety Report 5120727-6 (Version None)
Quarter: 2006Q4

REPORT INFORMATION
  Report Type: 
  Country: None (occurrence: None)
  Receive Date: 20061004
  Receipt Date: 20060925
  Transmission Date: 20070319
  Serious: Yes (Death)
  Sender: FDA-Public Use
  Company Number: FR-ABBOTT-06P-056-0344884-00

PATIENT
  Age: 17 Year
  Sex: Female

DRUGS (1)
  1. DEPAKOTE [Suspect]
     Indication: COMPLETED SUICIDE

REACTIONS (3)
  - COMPLETED SUICIDE [None]
  - ILL-DEFINED DISORDER [None]
  - INTENTIONAL OVERDOSE [None]
